FAERS Safety Report 8534498-4 (Version None)
Quarter: 2012Q3

REPORT INFORMATION
  Report Type: 
  Country: None (occurrence: None)
  Receive Date: 20120724
  Receipt Date: 20120716
  Transmission Date: 20120928
  Serious: Yes (Other)
  Sender: FDA-Public Use
  Company Number: US-ASTRAZENECA-2009SE17904

PATIENT
  Age: 46 Year
  Sex: Male

DRUGS (5)
  1. SEROQUEL XR [Suspect]
     Route: 048
  2. SEROQUEL XR [Suspect]
     Route: 048
  3. SEROQUEL XR [Suspect]
     Route: 048
  4. SEROQUEL XR [Suspect]
     Route: 048
  5. SEROQUEL XR [Suspect]
     Route: 048

REACTIONS (11)
  - ANXIETY [None]
  - FEAR [None]
  - FEELING ABNORMAL [None]
  - DRUG WITHDRAWAL SYNDROME [None]
  - THERAPEUTIC RESPONSE UNEXPECTED [None]
  - CONVULSION [None]
  - BACK INJURY [None]
  - DRUG INEFFECTIVE [None]
  - INSOMNIA [None]
  - OBSESSIVE-COMPULSIVE DISORDER [None]
  - DRUG DOSE OMISSION [None]
